FAERS Safety Report 16592234 (Version 1)
Quarter: 2019Q3

REPORT INFORMATION
  Report Type: Report from Study
  Country: None (occurrence: US)
  Receive Date: 20190718
  Receipt Date: 20190718
  Transmission Date: 20191004
  Serious: Yes (Death, Hospitalization)
  Sender: FDA-Public Use
  Company Number: US-ABBVIE-19K-163-2856626-00

PATIENT
  Age: 81 Year
  Sex: Male

DRUGS (2)
  1. VENCLEXTA [Suspect]
     Active Substance: VENETOCLAX
     Indication: CHRONIC LYMPHOCYTIC LEUKAEMIA
     Dosage: TAKE FOR 7 DAYS
     Route: 048
  2. VENCLEXTA [Suspect]
     Active Substance: VENETOCLAX
     Dosage: THEN ACCORDING TO PACKAGE DIRECTIONS
     Route: 048

REACTIONS (2)
  - Hospice care [Not Recovered/Not Resolved]
  - Death [Fatal]

NARRATIVE: CASE EVENT DATE: 20190710
